FAERS Safety Report 4629470-0 (Version None)
Quarter: 2005Q2

REPORT INFORMATION
  Report Type: 
  Country: None (occurrence: None)
  Receive Date: 20050405
  Receipt Date: 20050329
  Transmission Date: 20051028
  Serious: Yes (Life-Threatening)
  Sender: FDA-Public Use
  Company Number: 200510811GDS

PATIENT
  Age: 50 Year
  Sex: Male
  Weight: 90.8 kg

DRUGS (8)
  1. ACTIMAX (MOXIFLOXACIN) [Suspect]
     Indication: BRONCHITIS
     Dosage: 400 MG, QD, ORAL
     Route: 048
     Dates: start: 20041206, end: 20041208
  2. ACTIMAX (MOXIFLOXACIN) [Suspect]
     Indication: SINUSITIS
     Dosage: 400 MG, QD, ORAL
     Route: 048
     Dates: start: 20041206, end: 20041208
  3. DECORTIN [Concomitant]
  4. PARACODIN BITARTRATE TAB [Concomitant]
  5. BRONCHOFORTON [Concomitant]
  6. AMBROXOL [Concomitant]
  7. ANTIPYRETICS [Concomitant]
  8. NOSE DROPS, NOS [Concomitant]

REACTIONS (4)
  - NIGHTMARE [None]
  - PULMONARY EMBOLISM [None]
  - RESTLESSNESS [None]
  - SLEEP DISORDER [None]
